FAERS Safety Report 9251597 (Version 4)
Quarter: 2015Q2

REPORT INFORMATION
  Report Type: Report from Study
  Country: JP (occurrence: JP)
  Receive Date: 20130424
  Receipt Date: 20150508
  Transmission Date: 20150821
  Serious: Yes (Hospitalization, Other)
  Sender: FDA-Public Use
  Company Number: PHHY2013JP039348

PATIENT
  Age: 62 Year
  Sex: Female
  Weight: 54 kg

DRUGS (8)
  1. AFINITOR [Suspect]
     Active Substance: EVEROLIMUS
     Dosage: 10 MG, QD
     Route: 048
     Dates: start: 20140221, end: 20140515
  2. AFINITOR [Suspect]
     Active Substance: EVEROLIMUS
     Dosage: 10 MG, QD
     Route: 048
     Dates: start: 20130215, end: 20130307
  3. AFINITOR [Suspect]
     Active Substance: EVEROLIMUS
     Dosage: 5 MG, QD
     Route: 048
     Dates: start: 20130510, end: 20130621
  4. AFINITOR [Suspect]
     Active Substance: EVEROLIMUS
     Dosage: 5 MG, QD
     Route: 048
     Dates: start: 20130627, end: 20130902
  5. AFINITOR [Suspect]
     Active Substance: EVEROLIMUS
     Dosage: 10 MG, QD
     Route: 048
     Dates: start: 20121126, end: 20130121
  6. AFINITOR [Suspect]
     Active Substance: EVEROLIMUS
     Dosage: 5 MG, QD
     Route: 048
     Dates: start: 20130913, end: 20140220
  7. DACARBAZINE. [Concomitant]
     Active Substance: DACARBAZINE
     Indication: PANCREATIC NEUROENDOCRINE TUMOUR
     Route: 065
     Dates: start: 20090928, end: 20120514
  8. AFINITOR [Suspect]
     Active Substance: EVEROLIMUS
     Indication: PANCREATIC NEUROENDOCRINE TUMOUR
     Dosage: 10 MG, QD
     Route: 048
     Dates: start: 20120725, end: 20121108

REACTIONS (34)
  - Cholangitis [Recovered/Resolved]
  - Cholangitis [Recovered/Resolved]
  - Neutrophil count increased [Unknown]
  - Abdominal pain upper [Recovered/Resolved]
  - Platelet count increased [Unknown]
  - Basophil count decreased [Unknown]
  - Blood glucose increased [Unknown]
  - Pyrexia [Unknown]
  - Stomatitis [Recovered/Resolved]
  - Eosinophil count abnormal [Unknown]
  - Blood albumin decreased [Unknown]
  - Gamma-glutamyltransferase increased [Unknown]
  - Abdominal pain upper [Recovered/Resolved]
  - Protein total decreased [Unknown]
  - Haemoglobin decreased [Unknown]
  - Malignant neoplasm progression [Not Recovered/Not Resolved]
  - Cholangitis [Recovered/Resolved]
  - Alanine aminotransferase increased [Unknown]
  - Blood uric acid decreased [Unknown]
  - Cholangitis [Recovered/Resolved]
  - C-reactive protein increased [Unknown]
  - Aspartate aminotransferase increased [Unknown]
  - Pruritus [Recovered/Resolved]
  - Pruritus [Recovered/Resolved]
  - Lymphocyte count decreased [Unknown]
  - Stomatitis [Recovered/Resolved]
  - Blood alkaline phosphatase increased [Unknown]
  - Blood cholesterol increased [Unknown]
  - Eczema [Recovered/Resolved]
  - Stomatitis [Recovered/Resolved]
  - Malaise [Unknown]
  - Cholangitis [Recovered/Resolved]
  - Blood lactate dehydrogenase increased [Unknown]
  - Monocyte count decreased [Unknown]

NARRATIVE: CASE EVENT DATE: 20120728
